FAERS Safety Report 7912267-3 (Version None)
Quarter: 2011Q4

REPORT INFORMATION
  Report Type: 
  Country: None (occurrence: None)
  Receive Date: 20111114
  Receipt Date: 20111019
  Transmission Date: 20120403
  Serious: Yes (Other)
  Sender: FDA-Public Use
  Company Number: BR-MERCK-1110BRA00074

PATIENT
  Age: 70 Year
  Sex: Female

DRUGS (1)
  1. FOSAMAX [Suspect]
     Route: 065

REACTIONS (6)
  - NEOPLASM MALIGNANT [None]
  - BILIARY TRACT DISORDER [None]
  - NAUSEA [None]
  - DIZZINESS [None]
  - MALAISE [None]
  - SURGERY [None]
